FAERS Safety Report 6827496-X (Version None)
Quarter: 2010Q3

REPORT INFORMATION
  Report Type: 
  Country: None (occurrence: None)
  Receive Date: 20100709
  Receipt Date: 20070117
  Transmission Date: 20110219
  Serious: No
  Sender: FDA-Public Use
  Company Number: US-PFIZER INC-2007005587

PATIENT
  Age: 58 Year
  Sex: Female
  Weight: 88.45 kg

DRUGS (9)
  1. CHANTIX [Suspect]
     Dates: start: 20060101
  2. XANAX [Concomitant]
  3. VERAPAMIL [Concomitant]
  4. DIOVAN HCT [Concomitant]
  5. TOPROL-XL [Concomitant]
  6. PAXIL CR [Concomitant]
  7. LIPITOR [Concomitant]
  8. ZANTAC [Concomitant]
  9. RELAFEN [Concomitant]

REACTIONS (2)
  - ANXIETY [None]
  - WITHDRAWAL SYNDROME [None]
